FAERS Safety Report 6661900-5 (Version None)
Quarter: 2010Q1

REPORT INFORMATION
  Report Type: 
  Country: None (occurrence: None)
  Receive Date: 20100331
  Receipt Date: 20090923
  Transmission Date: 20100710
  Serious: Yes (Life-Threatening, Hospitalization)
  Sender: FDA-Public Use
  Company Number: US-BRISTOL-MYERS SQUIBB COMPANY-14788996

PATIENT
  Age: 4 Decade
  Sex: Female

DRUGS (1)
  1. ERBITUX [Suspect]
     Indication: LUNG NEOPLASM MALIGNANT
     Dosage: 1 DOSAGE FORM = WITHIN FIRST 5 ML

REACTIONS (1)
  - INFUSION RELATED REACTION [None]
